FAERS Safety Report 8246740-8 (Version None)
Quarter: 2012Q1

REPORT INFORMATION
  Report Type: 
  Country: None (occurrence: None)
  Receive Date: 20120330
  Receipt Date: 20120327
  Transmission Date: 20120608
  Serious: Yes (Life-Threatening, Hospitalization)
  Sender: FDA-Public Use
  Company Number: ES-PFIZER INC-2012063987

PATIENT
  Age: 54 Year
  Sex: Female

DRUGS (6)
  1. NOROXIN [Concomitant]
     Dosage: 400 MG, DAILY
     Route: 048
     Dates: start: 20101101
  2. FUROSEMIDE [Interacting]
     Dosage: 80 MG, DAILY
     Route: 048
     Dates: start: 20110407, end: 20110410
  3. PROPRANOLOL HYDROCHLORIDE [Interacting]
     Dosage: 100 MG, DAILY
     Route: 048
     Dates: start: 20101101
  4. ALDACTONE [Suspect]
     Indication: ASCITES
     Dosage: 150 MG, DAILY
     Route: 048
     Dates: start: 20110329, end: 20110407
  5. ALDACTONE [Interacting]
     Dosage: 200 MG, DAILY
     Route: 048
     Dates: start: 20110407, end: 20110410
  6. FUROSEMIDE [Interacting]
     Indication: ASCITES
     Dosage: 400 MG, WEEKLY
     Route: 048
     Dates: start: 20110329, end: 20110407

REACTIONS (2)
  - DRUG INTERACTION [None]
  - HEPATIC ENCEPHALOPATHY [None]
